FAERS Safety Report 9177867 (Version 2)
Quarter: 2013Q2

REPORT INFORMATION
  Report Type: Spontaneous
  Country: JP (occurrence: JP)
  Receive Date: 20130321
  Receipt Date: 20130409
  Transmission Date: 20140414
  Serious: Yes (Death, Hospitalization)
  Sender: FDA-Public Use
  Company Number: JP-BAYER-2013-031695

PATIENT
  Sex: Male

DRUGS (1)
  1. NEXAVAR [Suspect]
     Indication: HEPATOCELLULAR CARCINOMA
     Route: 048

REACTIONS (3)
  - Hepatic failure [Fatal]
  - Varicose vein ruptured [Recovered/Resolved]
  - Haematochezia [Recovered/Resolved]
